FAERS Safety Report 24279089 (Version 1)
Quarter: 2024Q3

REPORT INFORMATION
  Report Type: Spontaneous
  Country: ES (occurrence: ES)
  Receive Date: 20240903
  Receipt Date: 20240903
  Transmission Date: 20241017
  Serious: Yes (Other)
  Sender: MYLAN
  Company Number: None

PATIENT
  Age: 56 Year
  Sex: Female
  Weight: 68 kg

DRUGS (4)
  1. ATORVASTATIN [Suspect]
     Active Substance: ATORVASTATIN
     Indication: Prophylaxis
     Dosage: 1 DOSAGE FORM, QD (1 TABLET EVERY DAY CHRONIC), 28 TABLETS
     Route: 002
     Dates: start: 20230828, end: 20240212
  2. PANTOPRAZOLE SODIUM [Concomitant]
     Active Substance: PANTOPRAZOLE SODIUM
     Dosage: UNK, 28 TABLETS
     Route: 065
     Dates: start: 20230828
  3. CLOPIDOGREL [Concomitant]
     Active Substance: CLOPIDOGREL BISULFATE
     Dosage: UNK, 28 TABLETS
     Route: 065
     Dates: start: 20230828
  4. ASPIRIN [Concomitant]
     Active Substance: ASPIRIN
     Indication: Myocardial ischaemia
     Dosage: UNK, 100 GASTRO-RESISTANT TABLETS
     Route: 065
     Dates: start: 20230828

REACTIONS (2)
  - Hypertransaminasaemia [Unknown]
  - Alopecia [Unknown]

NARRATIVE: CASE EVENT DATE: 20240104
